FAERS Safety Report 8828245 (Version 2)
Quarter: 2012Q4

REPORT INFORMATION
  Report Type: 
  Country: AU (occurrence: AU)
  Receive Date: 20121008
  Receipt Date: 20121010
  Transmission Date: 20130627
  Serious: Yes (Hospitalization)
  Sender: FDA-Public Use
  Company Number: PHHY2012AU085847

PATIENT
  Sex: Female

DRUGS (2)
  1. CLOZARIL [Suspect]
     Dosage: 375 mg, UNK
     Route: 048
     Dates: start: 20120427
  2. PARACETAMOL [Concomitant]

REACTIONS (1)
  - Overdose [Unknown]
